FAERS Safety Report 6277735-1 (Version None)
Quarter: 2009Q3

REPORT INFORMATION
  Report Type: 
  Country: None (occurrence: None)
  Receive Date: 20090722
  Receipt Date: 20090713
  Transmission Date: 20100115
  Serious: Yes (Other)
  Sender: FDA-Public Use
  Company Number: B0538087A

PATIENT
  Sex: Female
  Weight: 65 kg

DRUGS (1)
  1. LAPATINIB [Suspect]
     Indication: BREAST CANCER
     Dosage: 1500MGD PER DAY
     Route: 048
     Dates: start: 20080327

REACTIONS (2)
  - ANAL ABSCESS [None]
  - RASH [None]
